FAERS Safety Report 25055783 (Version 2)
Quarter: 2025Q3

REPORT INFORMATION
  Report Type: Spontaneous
  Country: CN (occurrence: CN)
  Receive Date: 20250309
  Receipt Date: 20250803
  Transmission Date: 20251020
  Serious: Yes (Other)
  Sender: ALEXION PHARMACEUTICALS
  Company Number: CN-ASTRAZENECA-202503CHN000916CN

PATIENT
  Age: 72 Year
  Sex: Female
  Weight: 50 kg

DRUGS (1)
  1. PULMICORT RESPULES [Suspect]
     Active Substance: BUDESONIDE
     Indication: Antiinflammatory therapy
     Dosage: 1 MILLIGRAM, QD
     Dates: start: 20250227, end: 20250227

REACTIONS (1)
  - Dyspnoea [Recovering/Resolving]

NARRATIVE: CASE EVENT DATE: 20250227
